FAERS Safety Report 4754732-6 (Version None)
Quarter: 2005Q3

REPORT INFORMATION
  Report Type: 
  Country: None (occurrence: None)
  Receive Date: 20050825
  Receipt Date: 20050825
  Transmission Date: 20060218
  Serious: Yes (Hospitalization)
  Sender: FDA-Public Use
  Company Number: None

PATIENT
  Age: 34 Year
  Sex: Female
  Weight: 83.4619 kg

DRUGS (1)
  1. SEROQUEL [Suspect]
     Indication: SCHIZOPHRENIA
     Dosage: 400MG  TID   PO
     Route: 048
     Dates: start: 20040302, end: 20050823

REACTIONS (5)
  - DIABETIC KETOACIDOSIS [None]
  - MALAISE [None]
  - POLLAKIURIA [None]
  - THIRST [None]
  - VISION BLURRED [None]
